FAERS Safety Report 21833148 (Version 1)
Quarter: 2023Q1

REPORT INFORMATION
  Report Type: Spontaneous
  Country: US (occurrence: US)
  Receive Date: 20230106
  Receipt Date: 20230106
  Transmission Date: 20230417
  Serious: No
  Sender: FDA-Public Use
  Company Number: US-ALLERGAN-2242051US

PATIENT
  Age: 41 Year
  Sex: Female
  Weight: 66.678 kg

DRUGS (12)
  1. QULIPTA [Suspect]
     Active Substance: ATOGEPANT
     Indication: Migraine
     Dosage: UNK, SINGLE
     Route: 048
     Dates: start: 20221217
  2. QULIPTA [Suspect]
     Active Substance: ATOGEPANT
     Dosage: 30 MG, QD
     Route: 048
     Dates: start: 202210
  3. ZOLOFT [Concomitant]
     Active Substance: SERTRALINE HYDROCHLORIDE
     Indication: Depression
  4. ESTROGENS [Concomitant]
     Active Substance: ESTROGENS
     Indication: Hysterectomy
  5. PRILOSEC [Concomitant]
     Active Substance: OMEPRAZOLE MAGNESIUM
     Indication: Muscle relaxant therapy
  6. CEFIXIME [Concomitant]
     Active Substance: CEFIXIME
  7. FENTANYL [Concomitant]
     Active Substance: FENTANYL
     Indication: Pain
  8. XYZAL [Concomitant]
     Active Substance: LEVOCETIRIZINE DIHYDROCHLORIDE
     Indication: Hypersensitivity
  9. GABAPENTIN [Concomitant]
     Active Substance: GABAPENTIN
     Indication: Neuropathy peripheral
  10. AMITRIPTYLINE [Concomitant]
     Active Substance: AMITRIPTYLINE
     Indication: Migraine
     Dosage: UNK
     Dates: start: 202206
  11. PERCOCET [Concomitant]
     Active Substance: ACETAMINOPHEN\OXYCODONE HYDROCHLORIDE
     Indication: Migraine
  12. FIORICET [Concomitant]
     Active Substance: ACETAMINOPHEN\BUTALBITAL\CAFFEINE
     Indication: Migraine

REACTIONS (1)
  - Drug ineffective [Unknown]

NARRATIVE: CASE EVENT DATE: 20221001
